FAERS Safety Report 9451530 (Version 1)
Quarter: 2013Q3

REPORT INFORMATION
  Report Type: Spontaneous
  Country: FR (occurrence: FR)
  Receive Date: 20130811
  Receipt Date: 20130811
  Transmission Date: 20140515
  Serious: Yes (Hospitalization)
  Sender: FDA-Public Use
  Company Number: FR-MYLANLABS-2013S1016721

PATIENT
  Age: 70 Year
  Sex: Male

DRUGS (2)
  1. VANCOMYCINE [Suspect]
     Indication: DIABETIC FOOT
     Route: 042
     Dates: start: 20130402, end: 20130403
  2. RIFADINE [Suspect]
     Indication: DIABETIC FOOT
     Route: 048
     Dates: start: 20130402, end: 20130403

REACTIONS (2)
  - Cholestasis [Recovered/Resolved]
  - Hepatocellular injury [Recovered/Resolved]
